FAERS Safety Report 19020167 (Version 1)
Quarter: 2021Q1

REPORT INFORMATION
  Report Type: Report from Study
  Country: US (occurrence: US)
  Receive Date: 20210317
  Receipt Date: 20210317
  Transmission Date: 20210420
  Serious: Yes (Death)
  Sender: FDA-Public Use
  Company Number: US-MYLANLABS-2021M1015607

PATIENT

DRUGS (4)
  1. CLADRIBINE. [Suspect]
     Active Substance: CLADRIBINE
     Indication: CHEMOTHERAPY
     Dosage: 5 MILLIGRAM/SQ. METER, CYCLE INDUCTION THERAPY; CLADRIBINE ON DAYS 1?5
     Route: 042
  2. IDARUBICIN [Suspect]
     Active Substance: IDARUBICIN
     Indication: CHEMOTHERAPY
     Dosage: 10 MILLIGRAM/SQ. METER, CYCLE INDUCTION THERAPY; IDARUBICIN ON DAYS 1 ? 3
     Route: 042
  3. VENETOCLAX. [Suspect]
     Active Substance: VENETOCLAX
     Indication: CHEMOTHERAPY
     Dosage: INDUCTION THERAPY; ON DAYS 2?8
     Route: 048
  4. CYTARABINE. [Suspect]
     Active Substance: CYTARABINE
     Indication: CHEMOTHERAPY
     Dosage: INDUCTION THERAPY; 1.5 G/M2 ON DAYS 1? 5
     Route: 042

REACTIONS (1)
  - Death [Fatal]
